FAERS Safety Report 19948528 (Version 2)
Quarter: 2021Q4

REPORT INFORMATION
  Report Type: Spontaneous
  Country: US (occurrence: US)
  Receive Date: 20211013
  Receipt Date: 20211216
  Transmission Date: 20220303
  Serious: No
  Sender: FDA-Public Use
  Company Number: US-BIOGEN-2021BI01057414

PATIENT
  Sex: Female

DRUGS (1)
  1. TYSABRI [Suspect]
     Active Substance: NATALIZUMAB
     Indication: Multiple sclerosis
     Route: 065
     Dates: start: 20191119, end: 20200313

REACTIONS (4)
  - Muscular weakness [Unknown]
  - Hot flush [Unknown]
  - Tremor [Unknown]
  - Night sweats [Unknown]

NARRATIVE: CASE EVENT DATE: 20200101
